FAERS Safety Report 6571496-4 (Version None)
Quarter: 2010Q1

REPORT INFORMATION
  Report Type: 
  Country: None (occurrence: None)
  Receive Date: 20100205
  Receipt Date: 20100127
  Transmission Date: 20100710
  Serious: Yes (Hospitalization)
  Sender: FDA-Public Use
  Company Number: US-JNJFOC-20100111831

PATIENT
  Age: 81 Year
  Sex: Female
  Weight: 90.72 kg

DRUGS (7)
  1. TYLENOL (CAPLET) [Suspect]
     Indication: PAIN
     Route: 048
  2. TYLENOL (CAPLET) [Suspect]
     Indication: HEADACHE
     Route: 048
  3. ASPIRIN [Concomitant]
     Indication: CARDIAC DISORDER
  4. BENICAR [Concomitant]
     Indication: HYPERTENSION
  5. PROTONIX [Concomitant]
     Indication: GASTRIC DISORDER
  6. METOPROLOL TARTRATE [Concomitant]
     Indication: HYPERTENSION
  7. METOPROLOL TARTRATE [Concomitant]
     Indication: CARDIAC DISORDER

REACTIONS (6)
  - DRUG INEFFECTIVE [None]
  - HEADACHE [None]
  - NAUSEA [None]
  - PRODUCT QUALITY ISSUE [None]
  - TREMOR [None]
  - VOMITING [None]
